FAERS Safety Report 9283459 (Version 1)
Quarter: 2013Q2

REPORT INFORMATION
  Report Type: Spontaneous
  Country: US (occurrence: US)
  Receive Date: 20130510
  Receipt Date: 20130510
  Transmission Date: 20140414
  Serious: No
  Sender: FDA-Public Use
  Company Number: US-GLAXOSMITHKLINE-A1010409A

PATIENT
  Age: 61 Year
  Sex: Female

DRUGS (13)
  1. TYKERB [Suspect]
     Indication: BREAST CANCER
     Dosage: 500MG PER DAY
     Route: 048
     Dates: start: 20120904
  2. HERCEPTIN [Concomitant]
  3. FASLODEX [Concomitant]
  4. ATIVAN [Concomitant]
  5. DILTIAZEM [Concomitant]
  6. FLUCONAZOLE CREAM [Concomitant]
  7. HYDROCODONE [Concomitant]
  8. LASIX [Concomitant]
  9. LISINOPRIL [Concomitant]
  10. LIPITOR [Concomitant]
  11. LOMOTIL [Concomitant]
  12. POTASSIUM CHLORIDE [Concomitant]
  13. RESTORIL [Concomitant]

REACTIONS (1)
  - Diarrhoea [Not Recovered/Not Resolved]
